FAERS Safety Report 22055318 (Version 1)
Quarter: 2023Q1

REPORT INFORMATION
  Report Type: Spontaneous
  Country: US (occurrence: None)
  Receive Date: 20230301
  Receipt Date: 20230301
  Transmission Date: 20230418
  Serious: No
  Sender: FDA-Public Use
  Company Number: None

PATIENT
  Age: 56 Year
  Sex: Female
  Weight: 60.3 kg

DRUGS (5)
  1. ENDOCET [Suspect]
     Active Substance: ACETAMINOPHEN\OXYCODONE HYDROCHLORIDE
     Indication: Osteoarthritis
     Dosage: OTHER QUANTITY : 1 TABLET(S);?FREQUENCY : EVERY 6 HOURS;?
     Route: 048
     Dates: start: 20230220, end: 20230227
  2. ENDOCET [Suspect]
     Active Substance: ACETAMINOPHEN\OXYCODONE HYDROCHLORIDE
     Indication: Pain
  3. EFFEXOR XR [Concomitant]
     Active Substance: VENLAFAXINE HYDROCHLORIDE
  4. albuterol as needed [Concomitant]
  5. adderall 10 mg xr a.m. 5 mg tablet in afternoon as need [Concomitant]

REACTIONS (4)
  - Therapy non-responder [None]
  - Abdominal discomfort [None]
  - Agitation [None]
  - Product substitution issue [None]

NARRATIVE: CASE EVENT DATE: 20230220
